FAERS Safety Report 22369374 (Version 1)
Quarter: 2023Q2

REPORT INFORMATION
  Report Type: Spontaneous
  Country: AU (occurrence: US)
  Receive Date: 20230526
  Receipt Date: 20230526
  Transmission Date: 20230721
  Serious: No
  Sender: FDA-Public Use
  Company Number: AU-PCCINC-2023-PEL-000300

PATIENT

DRUGS (1)
  1. GABLOFEN [Suspect]
     Active Substance: BACLOFEN
     Indication: Product used for unknown indication
     Dosage: 150 MICROGRAM/DAY
     Route: 037

REACTIONS (1)
  - Muscle spasticity [Recovered/Resolved]
